FAERS Safety Report 10420952 (Version 1)
Quarter: 2014Q3

REPORT INFORMATION
  Report Type: Spontaneous
  Country: US (occurrence: None)
  Receive Date: 20140829
  Receipt Date: 20140829
  Transmission Date: 20150326
  Serious: Yes (Hospitalization)
  Sender: FDA-Public Use
  Company Number: None

PATIENT
  Age: 77 Year
  Sex: Male
  Weight: 65 kg

DRUGS (1)
  1. ASPIRIN. [Suspect]
     Active Substance: ASPIRIN
     Indication: CORONARY ARTERY DISEASE
     Route: 048
     Dates: start: 20061219, end: 20140724

REACTIONS (5)
  - Convulsion [None]
  - Chest pain [None]
  - Faeces discoloured [None]
  - Abnormal faeces [None]
  - Gastric haemorrhage [None]

NARRATIVE: CASE EVENT DATE: 20140724
